FAERS Safety Report 6404159-6 (Version None)
Quarter: 2009Q4

REPORT INFORMATION
  Report Type: 
  Country: None (occurrence: None)
  Receive Date: 20091016
  Receipt Date: 20090915
  Transmission Date: 20100525
  Serious: Yes (Hospitalization)
  Sender: FDA-Public Use
  Company Number: US-ALEXION-A200900678

PATIENT
  Sex: Male

DRUGS (13)
  1. SOLIRIS [Suspect]
     Indication: PAROXYSMAL NOCTURNAL HAEMOGLOBINURIA
     Dosage: UNK
     Route: 042
  2. SOLIRIS [Suspect]
     Dosage: 900 MG, EVERY 12 DAYS
     Route: 042
  3. PREDNISONE [Suspect]
     Indication: PAROXYSMAL NOCTURNAL HAEMOGLOBINURIA
     Dosage: 2 MG, QD
     Route: 048
  4. RESTORIL                           /00393701/ [Concomitant]
     Indication: SLEEP DISORDER
     Dosage: 15 MG, QD
     Route: 048
  5. ZANAFLEX [Concomitant]
     Indication: MUSCLE SPASMS
     Dosage: 4 MG, PRN
     Route: 048
  6. FRAGMIN [Concomitant]
     Indication: PROPHYLAXIS
     Dosage: 18000 UTS, QD
  7. PROCRIT                            /00909301/ [Concomitant]
     Indication: BLOOD COUNT ABNORMAL
     Dosage: 80000 UTS, 1 X WEEK
  8. NEUPOGEN [Concomitant]
     Indication: NEUTROPENIA
     Dosage: PRN
     Route: 048
  9. ADVAIR DISKUS 100/50 [Concomitant]
     Indication: ASTHMA
     Dosage: BID
  10. MS CONTIN [Concomitant]
     Indication: BACK PAIN
     Dosage: 45 MG, BID
     Route: 048
  11. PROTONIX                           /01263201/ [Concomitant]
     Indication: PROPHYLAXIS
     Dosage: 40 MG, BID
     Route: 048
  12. EXJADE [Concomitant]
     Indication: IRON OVERLOAD
     Dosage: 500 MG, 4 TABS QD
     Route: 048
  13. UNSPECIFIED MEDICATION [Concomitant]
     Indication: ABDOMINAL DISTENSION
     Dosage: PRN
     Route: 048

REACTIONS (6)
  - FIBULA FRACTURE [None]
  - LOCALISED INFECTION [None]
  - PAIN [None]
  - SHOCK [None]
  - TENDON RUPTURE [None]
  - TIBIA FRACTURE [None]
